FAERS Safety Report 6977457-5 (Version None)
Quarter: 2010Q3

REPORT INFORMATION
  Report Type: 
  Country: None (occurrence: None)
  Receive Date: 20100910
  Receipt Date: 20100831
  Transmission Date: 20110219
  Serious: Yes (Other)
  Sender: FDA-Public Use
  Company Number: US-AMGEN-QUU433963

PATIENT
  Sex: Male

DRUGS (2)
  1. NPLATE [Suspect]
     Indication: PRODUCT USED FOR UNKNOWN INDICATION
     Dates: start: 20090318, end: 20090506
  2. UNSPECIFIED MEDICATION [Concomitant]

REACTIONS (1)
  - PAROXYSMAL NOCTURNAL HAEMOGLOBINURIA [None]
